FAERS Safety Report 8732690 (Version 2)
Quarter: 2012Q4

REPORT INFORMATION
  Report Type: 
  Country: DE (occurrence: DE)
  Receive Date: 20120820
  Receipt Date: 20121010
  Transmission Date: 20130627
  Serious: Yes (Other)
  Sender: FDA-Public Use
  Company Number: DE-ROCHE-1103101

PATIENT
  Age: 64 Year
  Sex: Female
  Weight: 55 kg

DRUGS (7)
  1. AVASTIN [Suspect]
     Indication: METASTASES TO PERITONEUM
     Route: 042
     Dates: start: 20120308, end: 20120719
  2. GRANISETRON [Concomitant]
     Indication: PREMEDICATION
     Route: 042
     Dates: start: 20120308, end: 20120719
  3. DEXAMETHASON [Concomitant]
     Indication: PREMEDICATION
     Route: 042
     Dates: start: 20120308, end: 20120719
  4. RANITIDIN [Concomitant]
     Indication: PREMEDICATION
     Route: 042
     Dates: start: 20120308, end: 20120719
  5. TAVEGIL [Concomitant]
     Indication: PREMEDICATION
     Route: 042
     Dates: start: 20120308, end: 20120719
  6. CARBOPLATIN [Concomitant]
     Indication: METASTASES TO PERITONEUM
  7. TAXOL [Concomitant]
     Indication: METASTASES TO PERITONEUM

REACTIONS (1)
  - Dysphonia [Recovered/Resolved]
